FAERS Safety Report 9859100 (Version 2)
Quarter: 2014Q1

REPORT INFORMATION
  Report Type: Report from Study
  Country: US (occurrence: US)
  Receive Date: 20140131
  Receipt Date: 20140131
  Transmission Date: 20141002
  Serious: Yes (Hospitalization)
  Sender: FDA-Public Use
  Company Number: US-ACTELION-A-NJ2013-91530

PATIENT
  Age: 30 Year
  Sex: Male

DRUGS (2)
  1. VELETRI [Suspect]
     Indication: COR PULMONALE CHRONIC
     Dosage: 23 NG/KG, PER MIN
     Route: 042
     Dates: start: 20130312
  2. TRACLEER [Suspect]
     Indication: PULMONARY ARTERIAL HYPERTENSION
     Dosage: 125 MG, QD
     Route: 048
     Dates: start: 20130821

REACTIONS (7)
  - Pulmonary oedema [Unknown]
  - Chest discomfort [Unknown]
  - Pericardial effusion [Unknown]
  - Pleural effusion [Unknown]
  - Localised oedema [Unknown]
  - Weight increased [Unknown]
  - Orthopnoea [Unknown]
